FAERS Safety Report 20130697 (Version 1)
Quarter: 2021Q4

REPORT INFORMATION
  Report Type: Report from Study
  Country: CN (occurrence: CN)
  Receive Date: 20211130
  Receipt Date: 20211130
  Transmission Date: 20220304
  Serious: Yes (Hospitalization)
  Sender: FDA-Public Use
  Company Number: CN-BAYER-2021A249973

PATIENT
  Age: 55 Year
  Sex: Male
  Weight: 75 kg

DRUGS (24)
  1. STIVARGA [Suspect]
     Active Substance: REGORAFENIB
     Indication: Hepatocellular carcinoma
     Dosage: 160 MG, QD
     Dates: start: 20190702, end: 20190707
  2. STIVARGA [Suspect]
     Active Substance: REGORAFENIB
     Indication: Hepatocellular carcinoma
     Dosage: 160 MG, QD
     Dates: start: 20190812
  3. STIVARGA [Suspect]
     Active Substance: REGORAFENIB
     Indication: Hepatocellular carcinoma
     Dosage: 80 MG, QD
     Dates: start: 20190923
  4. STIVARGA [Suspect]
     Active Substance: REGORAFENIB
     Indication: Hepatocellular carcinoma
     Dosage: 120 MG, QD
     Dates: start: 20200707, end: 20210107
  5. STIVARGA [Suspect]
     Active Substance: REGORAFENIB
     Indication: Hepatocellular carcinoma
     Dosage: 120 MG, QD
     Dates: start: 20210131
  6. ADENOSINE [Concomitant]
     Active Substance: ADENOSINE
     Dosage: 0.5 G, QD
     Dates: start: 20190707, end: 20190707
  7. ADENOSINE [Concomitant]
     Active Substance: ADENOSINE
     Dosage: 1 UNK
     Dates: start: 20190719, end: 20190728
  8. COMPOUND AMINO ACID INJECTION (9AA) [Concomitant]
     Dosage: 400 ML, QD
     Dates: start: 20190707, end: 20190710
  9. COMPOUND AMINO ACID INJECTION (9AA) [Concomitant]
     Dosage: 400 UNK
     Dates: start: 20190719, end: 20190722
  10. ENTECAVIR [Concomitant]
     Active Substance: ENTECAVIR
     Dosage: 0.5 MG, QD
     Dates: start: 201904, end: 20210801
  11. ENTECAVIR [Concomitant]
     Active Substance: ENTECAVIR
     Dosage: 0.25 MG, QD
     Dates: start: 20210802
  12. ESOMEPRAZOLE MAGNESIUM [Concomitant]
     Active Substance: ESOMEPRAZOLE MAGNESIUM
     Dosage: 20 MG, QD
     Dates: start: 20200514, end: 20200528
  13. LANSOPRAZOLE [Concomitant]
     Active Substance: LANSOPRAZOLE
     Dosage: 30 MG, BID
     Dates: start: 20190707, end: 20190722
  14. LEVOFLOXACIN LACTATE [Concomitant]
     Active Substance: LEVOFLOXACIN LACTATE
     Dosage: 0.5 G, ONCE
     Dates: start: 20190703, end: 20190703
  15. MAGNESIUM ISOGLYCYRRHIZINATE [Concomitant]
     Active Substance: MAGNESIUM ISOGLYCYRRHIZINATE
     Dosage: 200 MG, QD
     Dates: start: 20190707, end: 20210728
  16. MEZLOCILLIN SODIUM AND SULBACTAM SODIUM [Concomitant]
     Dosage: 3.75 G, TID
     Dates: start: 20190707, end: 20190723
  17. ORNIDAZOLE [Concomitant]
     Active Substance: ORNIDAZOLE
     Dosage: 0.5 G, ONCE
     Dates: start: 20190703, end: 20190703
  18. ORNITHINE ASPARTATE [Concomitant]
     Active Substance: ORNITHINE ASPARTATE
     Dosage: 5 G, QD
     Dates: start: 20190707, end: 20190718
  19. PANTOPRAZOLE SODIUM [Concomitant]
     Active Substance: PANTOPRAZOLE SODIUM
     Dosage: 40 MG, ONCE
     Dates: start: 20200628, end: 20200628
  20. PRANOPROFEN [Concomitant]
     Active Substance: PRANOPROFEN
     Dosage: 1 DF, PRN
     Dates: start: 20190713, end: 20190718
  21. GLUTATHIONE [Concomitant]
     Active Substance: GLUTATHIONE
     Dosage: 1.8 G, QD
     Dates: start: 20190707, end: 20190722
  22. TEPRENONE [Concomitant]
     Active Substance: TEPRENONE
     Dosage: 50 MG, TID
     Dates: start: 20200514, end: 20200528
  23. VITAMIN K1 [Concomitant]
     Active Substance: PHYTONADIONE
     Dosage: 10 MG, QD
     Dates: start: 20190707, end: 20190722
  24. VITAMINS NOS [Concomitant]
     Active Substance: VITAMINS
     Dosage: 467.1 MG, QD
     Dates: start: 20190707, end: 20190710

REACTIONS (1)
  - Coronary artery disease [Recovering/Resolving]

NARRATIVE: CASE EVENT DATE: 20201101
